FAERS Safety Report 14312945 (Version 1)
Quarter: 2017Q4

REPORT INFORMATION
  Report Type: Spontaneous
  Country: FR (occurrence: FR)
  Receive Date: 20171221
  Receipt Date: 20171221
  Transmission Date: 20180321
  Serious: Yes (Hospitalization)
  Sender: FDA-Public Use
  Company Number: FR-009507513-1712FRA008743

PATIENT
  Sex: Female

DRUGS (2)
  1. NOXAFIL [Suspect]
     Active Substance: POSACONAZOLE
     Indication: ASPERGILLUS INFECTION
     Dosage: UNKNOWN IF TABLETS OR ORAL SUSPENSION
     Dates: start: 201610
  2. NOXAFIL [Suspect]
     Active Substance: POSACONAZOLE
     Dosage: 200 MG, TID. SINCE HER HOSPITALIZATION WAS TREATED WITH NOXAFIL ORAL SUSPENSION
     Route: 048

REACTIONS (1)
  - Adverse event [Unknown]
